FAERS Safety Report 10951535 (Version 1)
Quarter: 2015Q1

REPORT INFORMATION
  Report Type: Report from Study
  Country: AR (occurrence: AR)
  Receive Date: 20150324
  Receipt Date: 20150324
  Transmission Date: 20150721
  Serious: Yes (Other)
  Sender: FDA-Public Use
  Company Number: PHHY2015AR034795

PATIENT
  Sex: Female

DRUGS (1)
  1. ONBREZ BREEZHALER [Suspect]
     Active Substance: INDACATEROL
     Indication: FATIGUE
     Dosage: 150 UG, QD
     Route: 065

REACTIONS (2)
  - Product use issue [Unknown]
  - Chronic obstructive pulmonary disease [Unknown]
